FAERS Safety Report 7296946-X (Version None)
Quarter: 2011Q1

REPORT INFORMATION
  Report Type: 
  Country: None (occurrence: None)
  Receive Date: 20110204
  Receipt Date: 20110126
  Transmission Date: 20110831
  Serious: Yes (Other)
  Sender: FDA-Public Use
  Company Number: 2011MA000862

PATIENT
  Age: 21 Year
  Sex: Female

DRUGS (18)
  1. ACETAZOLAMIDE [Suspect]
     Indication: EPILEPSY
     Dosage: 125 MG;
  2. VIGABATRIN [Concomitant]
  3. CLOBAZAM [Concomitant]
  4. VALPROIC ACID [Concomitant]
  5. LEVETIRACETAM [Suspect]
     Indication: EPILEPSY
     Dosage: 250 MG; BID;
  6. CLONAZEPAM [Suspect]
     Indication: EPILEPSY
     Dosage: 0.25 MG; PRN;
  7. LAMOTRIGINE [Suspect]
     Indication: EPILEPSY
  8. GABAPENTIN [Concomitant]
  9. ZONISAMIDE [Concomitant]
  10. ETHOSUXIMIDE [Concomitant]
  11. ACETAZOLAMIDE [Concomitant]
  12. CARBAMAZEPINE [Concomitant]
  13. LAMOTRIGINE [Concomitant]
  14. PHENYTOIN [Concomitant]
  15. TOPIRAMATE [Concomitant]
  16. STEROIDS [Concomitant]
  17. RUFINAMIDE [Concomitant]
  18. OXCARBAZEPINE [Concomitant]

REACTIONS (6)
  - FEAR [None]
  - FATIGUE [None]
  - MUSCLE TWITCHING [None]
  - NERVOUSNESS [None]
  - GRAND MAL CONVULSION [None]
  - SPEECH DISORDER [None]
